FAERS Safety Report 15356215 (Version 2)
Quarter: 2018Q4

REPORT INFORMATION
  Report Type: Spontaneous
  Country: ZA (occurrence: ZA)
  Receive Date: 20180906
  Receipt Date: 20181008
  Transmission Date: 20190204
  Serious: No
  Sender: FDA-Public Use
  Company Number: ZA-PFIZER INC-2018355547

PATIENT
  Age: 41 Year
  Sex: Female

DRUGS (6)
  1. ECOTRIN [Suspect]
     Active Substance: ASPIRIN
     Dosage: 81 MG, UNK
  2. ZARTAN [Suspect]
     Active Substance: LOSARTAN POTASSIUM
     Dosage: 100 MG, UNK
  3. LOMANOR [Suspect]
     Active Substance: AMLODIPINE BESYLATE
     Dosage: 10 MG, UNK
  4. HEXA-BLOK [Suspect]
     Active Substance: ATENOLOL
     Dosage: 50 MG, UNK
  5. AMILORETIC [Suspect]
     Active Substance: AMILORIDE HYDROCHLORIDE\HYDROCHLOROTHIAZIDE
     Dosage: UNK
  6. ZOPAX [Suspect]
     Active Substance: ALPRAZOLAM
     Dosage: 0.25 MG, UNK

REACTIONS (5)
  - Stress [Unknown]
  - Headache [Recovered/Resolved]
  - Diarrhoea [Unknown]
  - Hypertension [Not Recovered/Not Resolved]
  - Overweight [Unknown]

NARRATIVE: CASE EVENT DATE: 2005
